FAERS Safety Report 10416870 (Version 1)
Quarter: 2014Q3

REPORT INFORMATION
  Report Type: Report from Study
  Country: US (occurrence: US)
  Receive Date: 20140828
  Receipt Date: 20140828
  Transmission Date: 20150326
  Serious: Yes (Disabling, Other)
  Sender: FDA-Public Use
  Company Number: US-ALEXION PHARMACEUTICALS INC.-A201305630

PATIENT

DRUGS (1)
  1. SOLIRIS [Suspect]
     Active Substance: ECULIZUMAB
     Indication: PAROXYSMAL NOCTURNAL HAEMOGLOBINURIA
     Dosage: UNK
     Route: 042

REACTIONS (9)
  - Activities of daily living impaired [Unknown]
  - Feeling abnormal [Unknown]
  - Fatigue [Unknown]
  - Pelvic pain [Unknown]
  - Hypertonic bladder [Unknown]
  - Anaemia [Unknown]
  - Exposure during pregnancy [Unknown]
  - Depression [Unknown]
  - Haemolysis [Unknown]
